FAERS Safety Report 14055542 (Version 2)
Quarter: 2017Q4

REPORT INFORMATION
  Report Type: Report from Study
  Country: None (occurrence: CA)
  Receive Date: 20171006
  Receipt Date: 20171103
  Transmission Date: 20180321
  Serious: Yes (Other)
  Sender: FDA-Public Use
  Company Number: CA-ABBVIE-17K-028-2119388-00

PATIENT
  Sex: Female

DRUGS (2)
  1. HUMIRA [Suspect]
     Active Substance: ADALIMUMAB
     Route: 058
     Dates: start: 2017
  2. HUMIRA [Suspect]
     Active Substance: ADALIMUMAB
     Indication: CROHN^S DISEASE
     Route: 058
     Dates: start: 20161219, end: 2017

REACTIONS (5)
  - Stomatitis [Not Recovered/Not Resolved]
  - Inflammatory marker increased [Recovering/Resolving]
  - Large intestinal obstruction [Recovered/Resolved]
  - Pain in extremity [Not Recovered/Not Resolved]
  - Axillary pain [Unknown]

NARRATIVE: CASE EVENT DATE: 2016
